FAERS Safety Report 6435941-7 (Version None)
Quarter: 2009Q4

REPORT INFORMATION
  Report Type: 
  Country: None (occurrence: None)
  Receive Date: 20091111
  Receipt Date: 20091030
  Transmission Date: 20100525
  Serious: Yes (Hospitalization)
  Sender: FDA-Public Use
  Company Number: CH-BAYER-200935508GPV

PATIENT
  Age: 36 Year
  Sex: Female
  Weight: 49 kg

DRUGS (3)
  1. YASMIN [Suspect]
     Indication: ORAL CONTRACEPTION
     Route: 048
     Dates: start: 20020801, end: 20051001
  2. YASMIN [Suspect]
     Route: 048
     Dates: start: 20060401
  3. FLECTOR [Concomitant]
     Route: 062

REACTIONS (11)
  - ASTHENIA [None]
  - BACK PAIN [None]
  - CHEST DISCOMFORT [None]
  - DYSPNOEA [None]
  - DYSPNOEA EXERTIONAL [None]
  - MUSCULOSKELETAL PAIN [None]
  - PAIN IN EXTREMITY [None]
  - PALPITATIONS [None]
  - PULMONARY EMBOLISM [None]
  - SYNCOPE [None]
  - VERTIGO [None]
